FAERS Safety Report 6005800-2 (Version None)
Quarter: 2008Q4

REPORT INFORMATION
  Report Type: 
  Country: None (occurrence: None)
  Receive Date: 20081215
  Receipt Date: 20081209
  Transmission Date: 20090506
  Serious: Yes (Hospitalization)
  Sender: FDA-Public Use
  Company Number: 2008JP005710

PATIENT
  Age: 72 Year
  Sex: Female

DRUGS (1)
  1. VESICARE [Suspect]
     Indication: HYPERTONIC BLADDER
     Dosage: 5 MG, /D, ORAL
     Route: 048
     Dates: start: 20081111, end: 20081112

REACTIONS (2)
  - HYPOPHAGIA [None]
  - PYELONEPHRITIS [None]
